FAERS Safety Report 9238416 (Version 1)
Quarter: 2013Q2

REPORT INFORMATION
  Report Type: Spontaneous
  Country: US (occurrence: None)
  Receive Date: 20130416
  Receipt Date: 20130416
  Transmission Date: 20140414
  Serious: No
  Sender: FDA-Public Use
  Company Number: FK201301165

PATIENT
  Age: 16 Year
  Sex: Female

DRUGS (8)
  1. CISPLATIN [Suspect]
     Indication: METASTATIC NEOPLASM
  2. IFOSFAMIDE [Suspect]
     Indication: METASTATIC NEOPLASM
  3. TEMOZOLOMIDE [Suspect]
     Indication: METASTATIC NEOPLASM
  4. VINCRISTIN [Suspect]
     Indication: METASTATIC NEOPLASM
  5. CYCLOPHOSHAMIDE (CYCLOPHOSPAMIDE) [Concomitant]
  6. DOXORUBICIN (DOXORUBICIN) (DOXORUBICIN) [Concomitant]
  7. GEMCITABINE (GEMCITABINE) [Concomitant]
  8. DOCETAXEL (DOCETAXEL) [Concomitant]

REACTIONS (3)
  - Tongue discolouration [None]
  - Pancytopenia [None]
  - Nail discolouration [None]
